FAERS Safety Report 8525386-8 (Version None)
Quarter: 2012Q3

REPORT INFORMATION
  Report Type: 
  Country: None (occurrence: None)
  Receive Date: 20120710
  Receipt Date: 20120703
  Transmission Date: 20120928
  Serious: Yes (Other)
  Sender: FDA-Public Use
  Company Number: 2012032784

PATIENT
  Age: 69 Year
  Sex: Female

DRUGS (5)
  1. PRIVIGEN [Suspect]
     Indication: MUSCULAR WEAKNESS
     Dosage: SEE IMAGE
     Route: 042
     Dates: start: 20120613, end: 20120615
  2. PRIVIGEN [Suspect]
     Indication: MUSCULAR WEAKNESS
     Dosage: SEE IMAGE
     Route: 042
     Dates: start: 20120613, end: 20120615
  3. PRIVIGEN [Suspect]
     Indication: MUSCULAR WEAKNESS
     Dosage: SEE IMAGE
     Route: 042
     Dates: start: 20120613, end: 20120615
  4. PRIVIGEN [Suspect]
  5. PRIVIGEN [Suspect]

REACTIONS (8)
  - PHOTOPHOBIA [None]
  - MUSCULOSKELETAL STIFFNESS [None]
  - NAUSEA [None]
  - MENINGEAL DISORDER [None]
  - HEADACHE [None]
  - PYREXIA [None]
  - VOMITING [None]
  - OFF LABEL USE [None]
